FAERS Safety Report 9417407 (Version 2)
Quarter: 2013Q3

REPORT INFORMATION
  Report Type: Spontaneous
  Country: BR (occurrence: BR)
  Receive Date: 20130724
  Receipt Date: 20130925
  Transmission Date: 20140515
  Serious: Yes (Hospitalization)
  Sender: FDA-Public Use
  Company Number: BR-PFIZER INC-2013214237

PATIENT
  Age: 36 Year
  Sex: Female
  Weight: 160 kg

DRUGS (3)
  1. SOMAVERT [Suspect]
     Indication: ACROMEGALY
     Dosage: 10 MG, 1X/DAY
     Route: 058
     Dates: start: 20121015, end: 20130516
  2. NPH INSULIN [Concomitant]
     Indication: DIABETES MELLITUS
     Dosage: UNK
     Dates: start: 2012
  3. INSULIN, REGULAR [Concomitant]
     Indication: DIABETES MELLITUS
     Dosage: UNK
     Dates: start: 2012

REACTIONS (2)
  - Pituitary tumour [Unknown]
  - Post procedural complication [Unknown]
